FAERS Safety Report 7704038-8 (Version None)
Quarter: 2011Q3

REPORT INFORMATION
  Report Type: 
  Country: None (occurrence: None)
  Receive Date: 20110823
  Receipt Date: 20110817
  Transmission Date: 20111222
  Serious: Yes (Hospitalization)
  Sender: FDA-Public Use
  Company Number: BR-ELI_LILLY_AND_COMPANY-BR201007004742

PATIENT
  Sex: Female
  Weight: 53 kg

DRUGS (7)
  1. GEMCITABINE HYDROCHLORIDE [Suspect]
     Dosage: 750 MG/M2, OTHER
     Route: 042
     Dates: start: 20100712
  2. AMITRIPTYLINE HYDROCHLORIDE [Concomitant]
     Dosage: UNK, UNKNOWN
     Route: 065
     Dates: start: 20091001
  3. GEMCITABINE HYDROCHLORIDE [Suspect]
     Indication: BREAST CANCER METASTATIC
     Dosage: 1000 MG/M2, OTHER
     Route: 042
     Dates: start: 20100524
  4. VINFLUNINE [Suspect]
     Indication: BREAST CANCER METASTATIC
     Dosage: 320 MG/M2, OTHER
     Route: 042
     Dates: start: 20100524
  5. SERTRALINE HYDROCHLORIDE [Concomitant]
     Dosage: UNK, UNKNOWN
     Route: 065
     Dates: start: 20091001
  6. ACETAMINOPHEN [Concomitant]
     Dosage: UNK, UNKNOWN
     Route: 065
     Dates: start: 20091101
  7. CLONAZEPAM [Concomitant]
     Dosage: UNK, UNKNOWN
     Route: 065
     Dates: start: 20091001

REACTIONS (2)
  - NEUTROPENIA [None]
  - ERYSIPELAS [None]
